FAERS Safety Report 9586511 (Version 1)
Quarter: 2013Q4

REPORT INFORMATION
  Report Type: Spontaneous
  Country: FR (occurrence: FR)
  Receive Date: 20131003
  Receipt Date: 20131003
  Transmission Date: 20140711
  Serious: Yes (Other)
  Sender: FDA-Public Use
  Company Number: FR-SA-2013SA095788

PATIENT
  Sex: Female

DRUGS (2)
  1. RIFINAH [Suspect]
     Indication: TUBERCULOSIS
     Route: 065
     Dates: start: 201301, end: 201304
  2. LEVOTHYROX [Concomitant]
     Indication: THYROID DISORDER

REACTIONS (1)
  - Urinary tract infection [Unknown]
